FAERS Safety Report 19703141 (Version 1)
Quarter: 2021Q3

REPORT INFORMATION
  Report Type: Report from Study
  Country: US (occurrence: US)
  Receive Date: 20210816
  Receipt Date: 20210816
  Transmission Date: 20211014
  Serious: Yes (Other)
  Sender: FDA-Public Use
  Company Number: US-VIFOR (INTERNATIONAL) INC.-VIT-2021-06364

PATIENT
  Sex: Male

DRUGS (1)
  1. VELPHORO [Suspect]
     Active Substance: SUCROFERRIC OXYHYDROXIDE
     Indication: BLOOD PHOSPHORUS
     Dosage: TWO TABLETS OF 500 MG WITH MEALS THREE TIMES A DAY
     Route: 048
     Dates: start: 202008, end: 20210726

REACTIONS (2)
  - Diarrhoea [Unknown]
  - Abdominal pain [Unknown]
